FAERS Safety Report 13024522 (Version 2)
Quarter: 2017Q1

REPORT INFORMATION
  Report Type: Spontaneous
  Country: FR (occurrence: FR)
  Receive Date: 20161213
  Receipt Date: 20170119
  Transmission Date: 20170428
  Serious: Yes (Death, Hospitalization)
  Sender: FDA-Public Use
  Company Number: FR-CANTON LABORATORIES, LLC-1060763

PATIENT
  Age: 74 Year
  Sex: Male

DRUGS (1)
  1. ANAPROX DS [Suspect]
     Active Substance: NAPROXEN SODIUM
     Indication: PRODUCT USED FOR UNKNOWN INDICATION
     Route: 048
     Dates: start: 20161102

REACTIONS (1)
  - Dermo-hypodermitis [Fatal]

NARRATIVE: CASE EVENT DATE: 20161107
